FAERS Safety Report 7736626-7 (Version None)
Quarter: 2011Q3

REPORT INFORMATION
  Report Type: 
  Country: None (occurrence: None)
  Receive Date: 20110908
  Receipt Date: 20110905
  Transmission Date: 20111222
  Serious: Yes (Other)
  Sender: FDA-Public Use
  Company Number: IT-PFIZER INC-2011207582

PATIENT

DRUGS (2)
  1. ZOLEDRONIC [Concomitant]
     Dosage: 4 MG
     Route: 042
     Dates: start: 20091115, end: 20100419
  2. SUTENT [Suspect]
     Indication: RENAL CELL CARCINOMA
     Dosage: 37.5 MG, 1X/DAY
     Route: 048
     Dates: start: 20100730, end: 20110118

REACTIONS (3)
  - OSTEONECROSIS [None]
  - TEETHING [None]
  - IMPLANT SITE INFLAMMATION [None]
